FAERS Safety Report 25186820 (Version 3)
Quarter: 2025Q2

REPORT INFORMATION
  Report Type: Spontaneous
  Country: US (occurrence: US)
  Receive Date: 20250411
  Receipt Date: 20250602
  Transmission Date: 20250716
  Serious: Yes (Other)
  Sender: NOVO NORDISK
  Company Number: US-NOVOPROD-1407020

PATIENT
  Age: 41 Year
  Sex: Male
  Weight: 96 kg

DRUGS (8)
  1. SEMAGLUTIDE [Suspect]
     Active Substance: SEMAGLUTIDE
     Indication: Weight control
  2. SEMAGLUTIDE [Suspect]
     Active Substance: SEMAGLUTIDE
     Dates: end: 2025
  3. ABILIFY [Concomitant]
     Active Substance: ARIPIPRAZOLE
     Indication: Product used for unknown indication
  4. NEXIUM I.V. [Concomitant]
     Active Substance: ESOMEPRAZOLE SODIUM
     Indication: Product used for unknown indication
  5. METOPROLOL [Concomitant]
     Active Substance: METOPROLOL
     Indication: Product used for unknown indication
     Dosage: 50 MG, QD
  6. CRESTOR [Concomitant]
     Active Substance: ROSUVASTATIN CALCIUM
     Indication: Product used for unknown indication
  7. VENLAFAXINE [Concomitant]
     Active Substance: VENLAFAXINE HYDROCHLORIDE
     Indication: Product used for unknown indication
     Dosage: 75 MG, QD
  8. WEGOVY [Suspect]
     Active Substance: SEMAGLUTIDE
     Indication: Weight control

REACTIONS (11)
  - Autoimmune haemolytic anaemia [Recovering/Resolving]
  - Hepatosplenomegaly [Not Recovered/Not Resolved]
  - Bronchitis [Recovering/Resolving]
  - White blood cell count increased [Unknown]
  - Lymphocyte count increased [Unknown]
  - Pyrexia [Unknown]
  - Haptoglobin increased [Unknown]
  - Cough [Unknown]
  - Tachycardia [Unknown]
  - Diarrhoea [Unknown]
  - Counterfeit product administered [Recovered/Resolved]

NARRATIVE: CASE EVENT DATE: 20250201
